FAERS Safety Report 9644522 (Version 1)
Quarter: 2013Q4

REPORT INFORMATION
  Report Type: Spontaneous
  Country: US (occurrence: US)
  Receive Date: 20131025
  Receipt Date: 20131025
  Transmission Date: 20140711
  Serious: No
  Sender: FDA-Public Use
  Company Number: US-009507513-1310USA009496

PATIENT
  Sex: Male

DRUGS (1)
  1. PROVENTIL [Suspect]
     Dosage: AS NEEDED
     Route: 055
     Dates: start: 201307

REACTIONS (3)
  - Drug dose omission [Unknown]
  - Product quality issue [Unknown]
  - No adverse event [Unknown]
